FAERS Safety Report 6613673-X (Version None)
Quarter: 2010Q1

REPORT INFORMATION
  Report Type: 
  Country: None (occurrence: None)
  Receive Date: 20100304
  Receipt Date: 20100224
  Transmission Date: 20100710
  Serious: Yes (Death, Hospitalization, Other)
  Sender: FDA-Public Use
  Company Number: BR-ROCHE-687734

PATIENT
  Age: 29 Year
  Sex: Male

DRUGS (1)
  1. TAMIFLU [Suspect]
     Dosage: START DATE AND STOP DATE: 2010
     Route: 065

REACTIONS (4)
  - CARDIAC ARREST [None]
  - COMA [None]
  - DRUG INEFFECTIVE [None]
  - DYSPNOEA [None]
